FAERS Safety Report 7503936-8 (Version None)
Quarter: 2011Q2

REPORT INFORMATION
  Report Type: 
  Country: None (occurrence: None)
  Receive Date: 20110525
  Receipt Date: 20110517
  Transmission Date: 20111010
  Serious: Yes (Hospitalization)
  Sender: FDA-Public Use
  Company Number: US-B.I. PHARMACEUTICALS,INC./RIDGEFIELD-2011-BP-13303BP

PATIENT
  Age: 95 Year
  Sex: Female

DRUGS (9)
  1. ASPIRIN [Suspect]
  2. DIAZIDE [Concomitant]
     Indication: FLUID RETENTION
  3. PRADAXA [Suspect]
     Indication: ATRIAL FIBRILLATION
     Dosage: 300 MG
     Route: 048
     Dates: start: 20110513, end: 20110516
  4. COUMADIN [Concomitant]
     Indication: ATRIAL FIBRILLATION
     Route: 048
     Dates: end: 20110511
  5. SIMVASTATIN [Concomitant]
     Indication: BLOOD CHOLESTEROL INCREASED
  6. LASIX [Concomitant]
     Indication: FLUID RETENTION
  7. POTASSIUM CHLORIDE [Concomitant]
     Indication: FLUID RETENTION
  8. DIOVAN [Concomitant]
     Indication: HYPERTENSION
  9. ASPIRIN [Concomitant]
     Indication: ATRIAL FIBRILLATION
     Dosage: 81 MG
     Route: 048

REACTIONS (4)
  - LUNG INFECTION [None]
  - HAEMOPTYSIS [None]
  - PULMONARY HAEMORRHAGE [None]
  - WHITE BLOOD CELL COUNT DECREASED [None]
